FAERS Safety Report 9993392 (Version 2)
Quarter: 2014Q2

REPORT INFORMATION
  Report Type: Spontaneous
  Country: US (occurrence: US)
  Receive Date: 20140310
  Receipt Date: 20140414
  Transmission Date: 20141212
  Serious: Yes (Other)
  Sender: FDA-Public Use
  Company Number: CHPA2014US003591

PATIENT
  Age: 72 Year
  Sex: Female

DRUGS (4)
  1. VOLTAREN GEL [Suspect]
     Indication: PROCEDURAL PAIN
     Dosage: 4 G, QID
     Route: 061
     Dates: start: 20120831
  2. VOLTAREN GEL [Suspect]
     Indication: SCAR PAIN
     Dosage: UNK
     Route: 061
  3. VOLTAREN GEL [Suspect]
     Indication: OFF LABEL USE
  4. TRAMADOL HYDROCHLORIDE TABLETS [Suspect]
     Indication: PAIN

REACTIONS (2)
  - Hallucination [Unknown]
  - Scar pain [Not Recovered/Not Resolved]
